FAERS Safety Report 24703179 (Version 5)
Quarter: 2025Q2

REPORT INFORMATION
  Report Type: Report from Study
  Country: JP (occurrence: JP)
  Receive Date: 20241205
  Receipt Date: 20250620
  Transmission Date: 20250717
  Serious: Yes (Death)
  Sender: SHIONOGI
  Company Number: JP-shionogi-202400001248

PATIENT
  Age: 6 Year
  Sex: Male
  Weight: 13.8 kg

DRUGS (8)
  1. CEFIDEROCOL [Suspect]
     Active Substance: CEFIDEROCOL
     Indication: Bacteraemia
     Route: 041
     Dates: start: 20241008, end: 20241022
  2. VANCOMYCIN [Concomitant]
     Active Substance: VANCOMYCIN
     Indication: Product used for unknown indication
     Route: 065
     Dates: start: 20241001, end: 20241014
  3. VANCOMYCIN [Concomitant]
     Active Substance: VANCOMYCIN
     Indication: Bacteraemia
  4. GENTAMICIN SULFATE [Concomitant]
     Active Substance: GENTAMICIN SULFATE
     Indication: Bacteraemia
     Route: 065
     Dates: start: 20241008, end: 20241011
  5. RIFAMPIN [Concomitant]
     Active Substance: RIFAMPIN
     Indication: Product used for unknown indication
     Route: 048
     Dates: start: 20241012, end: 20241015
  6. DAPTOMYCIN [Concomitant]
     Active Substance: DAPTOMYCIN
     Indication: Product used for unknown indication
     Route: 065
     Dates: start: 20241015, end: 20241101
  7. MICAFUNGIN SODIUM [Concomitant]
     Active Substance: MICAFUNGIN SODIUM
     Indication: Product used for unknown indication
     Route: 065
     Dates: end: 20241101
  8. CYTARABINE [Concomitant]
     Active Substance: CYTARABINE
     Indication: Blast cell count increased
     Route: 065
     Dates: start: 20241023, end: 20241028

REACTIONS (5)
  - Blast cell count increased [Fatal]
  - Haemorrhage [Fatal]
  - Oxygen saturation decreased [Fatal]
  - Acute lymphocytic leukaemia [Fatal]
  - Product administered to patient of inappropriate age [Unknown]

NARRATIVE: CASE EVENT DATE: 20241017
